FAERS Safety Report 13582672 (Version 1)
Quarter: 2017Q2

REPORT INFORMATION
  Report Type: Spontaneous
  Country: US (occurrence: US)
  Receive Date: 20170525
  Receipt Date: 20170525
  Transmission Date: 20170830
  Serious: No
  Sender: FDA-Public Use
  Company Number: US-TEVA-771281ACC

PATIENT
  Sex: Male
  Weight: 106.69 kg

DRUGS (1)
  1. FENTORA [Suspect]
     Active Substance: FENTANYL CITRATE
     Indication: COMPLEX REGIONAL PAIN SYNDROME
     Dosage: 200 MICROGRAM DAILY;
     Route: 002
     Dates: start: 2012

REACTIONS (2)
  - Pain [Unknown]
  - Drug ineffective [Unknown]
